FAERS Safety Report 4304680-0 (Version None)
Quarter: 2004Q1

REPORT INFORMATION
  Report Type: 
  Country: None (occurrence: None)
  Receive Date: 20040226
  Receipt Date: 20031113
  Transmission Date: 20041129
  Serious: No
  Sender: FDA-Public Use
  Company Number: US-GLAXOSMITHKLINE-A0439643A

PATIENT
  Age: 29 Year
  Sex: Female
  Weight: 68.2 kg

DRUGS (1)
  1. WELLBUTRIN [Suspect]
     Dosage: 300MG PER DAY
     Route: 048
     Dates: start: 20031001, end: 20031102

REACTIONS (3)
  - PRURITUS [None]
  - RASH [None]
  - URTICARIA [None]
